FAERS Safety Report 4910110-8 (Version None)
Quarter: 2006Q1

REPORT INFORMATION
  Report Type: 
  Country: None (occurrence: None)
  Receive Date: 20060209
  Receipt Date: 20060131
  Transmission Date: 20060701
  Serious: Yes (Death)
  Sender: FDA-Public Use
  Company Number: 163-20785-06010167

PATIENT
  Age: 59 Year
  Sex: Female

DRUGS (1)
  1. THALOMID [Suspect]
     Indication: BREAST CANCER
     Dosage: 400 MG DAILY ORAL
     Route: 048
     Dates: start: 20050822, end: 20051220

REACTIONS (1)
  - LUNG NEOPLASM MALIGNANT [None]
